FAERS Safety Report 14014253 (Version 1)
Quarter: 2017Q3

REPORT INFORMATION
  Report Type: Spontaneous
  Country: US (occurrence: None)
  Receive Date: 20170926
  Receipt Date: 20170926
  Transmission Date: 20171128
  Serious: Yes (Hospitalization)
  Sender: FDA-Public Use
  Company Number: None

PATIENT
  Age: 57 Year
  Sex: Male

DRUGS (1)
  1. PREDNISONE TAB 10MG [Suspect]
     Active Substance: PREDNISONE
     Route: 048
     Dates: start: 20170830

REACTIONS (1)
  - Hypertension [None]

NARRATIVE: CASE EVENT DATE: 20170918
